FAERS Safety Report 5917457-7 (Version None)
Quarter: 2008Q4

REPORT INFORMATION
  Report Type: 
  Country: None (occurrence: None)
  Receive Date: 20081009
  Receipt Date: 20081009
  Transmission Date: 20090506
  Serious: No
  Sender: FDA-Public Use
  Company Number: None

PATIENT
  Age: 63 Year
  Sex: Female
  Weight: 104.3273 kg

DRUGS (1)
  1. AMBIEN CR [Suspect]
     Indication: INSOMNIA
     Dosage: 1 PILL NIGHTLY PO
     Route: 048
     Dates: start: 20070501, end: 20081004

REACTIONS (5)
  - AMNESIA [None]
  - FEAR [None]
  - NIGHTMARE [None]
  - PARALYSIS [None]
  - SCREAMING [None]
